FAERS Safety Report 24152382 (Version 2)
Quarter: 2024Q4

REPORT INFORMATION
  Report Type: Spontaneous
  Country: JP (occurrence: JP)
  Receive Date: 20240730
  Receipt Date: 20241112
  Transmission Date: 20250114
  Serious: Yes (Hospitalization)
  Sender: EISAI
  Company Number: JP-Eisai-202403150_LEN-RCC_P_1

PATIENT
  Age: 65 Year
  Sex: Male

DRUGS (3)
  1. LENVIMA [Suspect]
     Active Substance: LENVATINIB
     Indication: Renal cell carcinoma
     Dosage: 2 COURSES
     Route: 048
     Dates: start: 20240321, end: 2024
  2. LENVIMA [Suspect]
     Active Substance: LENVATINIB
     Dosage: 2 COURSES
     Route: 048
     Dates: start: 2024
  3. KEYTRUDA [Suspect]
     Active Substance: PEMBROLIZUMAB
     Indication: Renal cell carcinoma
     Dosage: 2 COURSES
     Route: 041
     Dates: start: 20240321

REACTIONS (4)
  - Interstitial lung disease [Recovering/Resolving]
  - Rash [Recovering/Resolving]
  - KL-6 increased [Unknown]
  - Stomatitis [Recovered/Resolved]

NARRATIVE: CASE EVENT DATE: 20240502
